FAERS Safety Report 6093015-1 (Version None)
Quarter: 2009Q1

REPORT INFORMATION
  Report Type: 
  Country: None (occurrence: None)
  Receive Date: 20090224
  Receipt Date: 20090211
  Transmission Date: 20090719
  Serious: Yes (Hospitalization)
  Sender: FDA-Public Use
  Company Number: 237340J08USA

PATIENT
  Age: 53 Year
  Sex: Female

DRUGS (17)
  1. REBIF [Suspect]
     Indication: MULTIPLE SCLEROSIS
     Dosage: 44 MCG, 3 IN 1 WEEKS, SUBCUTANEOUS
     Route: 058
     Dates: start: 20050701, end: 20081226
  2. BONIVA [Suspect]
  3. SILVADENE [Suspect]
     Indication: LOCALISED INFECTION
     Dates: start: 20080101
  4. VANCOMYCIN [Suspect]
     Indication: SEPSIS
     Dates: start: 20081222, end: 20081228
  5. CIPRO [Suspect]
     Indication: SEPSIS
     Dates: start: 20081224, end: 20081228
  6. ZOSYN [Suspect]
     Indication: LOCALISED INFECTION
     Dates: start: 20081222, end: 20081228
  7. PREDNISONE [Concomitant]
  8. ALBUTEROL INHALER (SALBUTAMOL/00139501/) [Concomitant]
  9. TYLENOL (COTYLENOL) [Concomitant]
  10. ASMANEX TWISTHALER [Concomitant]
  11. ATIVAN [Concomitant]
  12. ELAVIL [Concomitant]
  13. FLONASE [Concomitant]
  14. LABETALOL HCL [Concomitant]
  15. LISINOPRIL [Concomitant]
  16. VALTREX [Concomitant]
  17. VICODIN [Concomitant]

REACTIONS (17)
  - AUTOIMMUNE HEPATITIS [None]
  - CLOSTRIDIAL INFECTION [None]
  - CONDITION AGGRAVATED [None]
  - FOCAL SEGMENTAL GLOMERULOSCLEROSIS [None]
  - GAMMOPATHY [None]
  - HYPERTENSION [None]
  - INTERNATIONAL NORMALISED RATIO INCREASED [None]
  - MULTIPLE SCLEROSIS [None]
  - NO THERAPEUTIC RESPONSE [None]
  - OPEN WOUND [None]
  - POST PROCEDURAL INFECTION [None]
  - RENAL FAILURE ACUTE [None]
  - SEPSIS [None]
  - SINUS HEADACHE [None]
  - SKIN DISCOLOURATION [None]
  - SYNOVIAL CYST [None]
  - SYSTEMIC LUPUS ERYTHEMATOSUS [None]
